FAERS Safety Report 24675854 (Version 1)
Quarter: 2024Q4

REPORT INFORMATION
  Report Type: Spontaneous
  Country: HU (occurrence: HU)
  Receive Date: 20241128
  Receipt Date: 20241128
  Transmission Date: 20250115
  Serious: Yes (Other)
  Sender: IPSEN BIOPHARMACEUTICALS, INC.
  Company Number: HU-IPSEN Group, Research and Development-2024-24045

PATIENT
  Age: 68 Year
  Sex: Male

DRUGS (3)
  1. LANREOTIDE ACETATE [Suspect]
     Active Substance: LANREOTIDE ACETATE
     Indication: Neuroendocrine tumour of the lung
     Route: 058
     Dates: start: 202303
  2. LANREOTIDE ACETATE [Suspect]
     Active Substance: LANREOTIDE ACETATE
     Indication: Off label use
  3. EVEROLIMUS [Concomitant]
     Active Substance: EVEROLIMUS
     Indication: Metastatic carcinoid tumour
     Dates: start: 202311, end: 202405

REACTIONS (2)
  - Malignant neoplasm progression [Unknown]
  - Off label use [Unknown]
